FAERS Safety Report 7528228-2 (Version None)
Quarter: 2011Q2

REPORT INFORMATION
  Report Type: 
  Country: None (occurrence: None)
  Receive Date: 20110607
  Receipt Date: 20100823
  Transmission Date: 20111010
  Serious: No
  Sender: FDA-Public Use
  Company Number: US-ASTRAZENECA-2010SE39691

PATIENT
  Age: 3 Month
  Sex: Female

DRUGS (1)
  1. PRILOSEC [Suspect]
     Indication: GASTROOESOPHAGEAL REFLUX DISEASE
     Route: 048
     Dates: start: 20100813

REACTIONS (5)
  - INFANTILE SPITTING UP [None]
  - ABDOMINAL PAIN [None]
  - FAECES DISCOLOURED [None]
  - ABDOMINAL DISCOMFORT [None]
  - FLATULENCE [None]
